FAERS Safety Report 8837512 (Version 1)
Quarter: 2012Q4

REPORT INFORMATION
  Report Type: 
  Country: US (occurrence: US)
  Receive Date: 20121012
  Receipt Date: 20121012
  Transmission Date: 20130627
  Serious: Yes (Disabling, Other)
  Sender: FDA-Public Use
  Company Number: US-PFIZER INC-2012252732

PATIENT
  Age: 46 Year
  Sex: Female
  Weight: 136 kg

DRUGS (10)
  1. LYRICA [Suspect]
     Indication: PAIN
     Dosage: UNK
     Dates: start: 2006, end: 2007
  2. LYRICA [Suspect]
     Dosage: 75 mg, 3x/day
     Dates: start: 2009, end: 2012
  3. LYRICA [Suspect]
     Dosage: 75 mg, 3x/day
     Dates: start: 2012
  4. PRAVASTATIN [Concomitant]
     Indication: BLOOD CHOLESTEROL ABNORMAL
     Dosage: 40 mg, 1x/day
  5. CYCLOBENZAPRINE [Concomitant]
     Indication: MUSCLE SPASMS
     Dosage: 10 mg, as needed
  6. CYCLOBENZAPRINE [Concomitant]
     Indication: BACK PAIN
  7. PLAVIX [Concomitant]
     Indication: STENT PLACEMENT
     Dosage: 75 mg, 1x/day
  8. CARVEDILOL [Concomitant]
     Indication: HYPERTENSION
     Dosage: half of 25 mg tablet two times a day
     Route: 048
  9. TRAZODONE [Concomitant]
     Indication: DEPRESSION
     Dosage: one third of the tablet of 150 mg daily
     Route: 048
  10. TRAZODONE [Concomitant]
     Indication: SLEEP DISORDER

REACTIONS (1)
  - Diabetes mellitus [Not Recovered/Not Resolved]
